FAERS Safety Report 5521778-X (Version None)
Quarter: 2007Q4

REPORT INFORMATION
  Report Type: 
  Country: None (occurrence: None)
  Receive Date: 20071120
  Receipt Date: 20071112
  Transmission Date: 20080405
  Serious: Yes (Life-Threatening, Hospitalization, Other)
  Sender: FDA-Public Use
  Company Number: GB-AVENTIS-200715147EU

PATIENT
  Age: 90 Year
  Sex: Male
  Weight: 55 kg

DRUGS (5)
  1. ENOXAPARIN SODIUM [Suspect]
     Route: 058
     Dates: start: 20070819, end: 20070819
  2. ASPIRIN [Concomitant]
     Dates: start: 20070819
  3. PLAVIX [Concomitant]
     Dates: start: 20070819
  4. SERETIDE [Concomitant]
     Route: 055
  5. VENTOLIN [Concomitant]
     Route: 055

REACTIONS (5)
  - DISSEMINATED INTRAVASCULAR COAGULATION [None]
  - EPISTAXIS [None]
  - HAEMATURIA [None]
  - THROMBOCYTOPENIA [None]
  - THROMBOSIS [None]
